FAERS Safety Report 12642199 (Version 2)
Quarter: 2016Q3

REPORT INFORMATION
  Report Type: Spontaneous
  Country: UY (occurrence: UY)
  Receive Date: 20160810
  Receipt Date: 20160812
  Transmission Date: 20161109
  Serious: Yes (Death, Other)
  Sender: FDA-Public Use
  Company Number: UY-PFIZER INC-2015385583

PATIENT
  Sex: Male

DRUGS (1)
  1. SUTENT [Suspect]
     Active Substance: SUNITINIB MALATE
     Indication: RENAL CANCER
     Dosage: UNK

REACTIONS (7)
  - Liver disorder [Unknown]
  - Disease progression [Fatal]
  - Renal cancer [Fatal]
  - Platelet count decreased [Unknown]
  - Liver function test abnormal [Unknown]
  - Bone disorder [Unknown]
  - Lymphadenopathy [Unknown]
